FAERS Safety Report 22175567 (Version 1)
Quarter: 2023Q2

REPORT INFORMATION
  Report Type: Spontaneous
  Country: US (occurrence: None)
  Receive Date: 20230404
  Receipt Date: 20230404
  Transmission Date: 20230722
  Serious: Yes (unspecified)
  Sender: FDA-Public Use
  Company Number: None

PATIENT
  Age: 9 Year
  Sex: Female
  Weight: 34.5 kg

DRUGS (4)
  1. OXCARBAZEPINE [Suspect]
     Active Substance: OXCARBAZEPINE
     Indication: Epilepsy
     Dosage: 7.6 76 ML TWICE A DAY ORAL?
     Route: 048
     Dates: start: 20230310
  2. OXCARBAZEPINE [Suspect]
     Active Substance: OXCARBAZEPINE
     Indication: Seizure
  3. TRILEPTAL [Suspect]
     Active Substance: OXCARBAZEPINE
     Indication: Epilepsy
     Dosage: 456 DROPS TWICE A DAY ORAL
     Route: 048
     Dates: start: 20230310
  4. TRILEPTAL [Suspect]
     Active Substance: OXCARBAZEPINE
     Indication: Seizure

REACTIONS (11)
  - Lip blister [None]
  - Rash [None]
  - Erythema [None]
  - Scratch [None]
  - Vomiting [None]
  - Fatigue [None]
  - Sluggishness [None]
  - Coordination abnormal [None]
  - Balance disorder [None]
  - Eructation [None]
  - Skin hyperpigmentation [None]

NARRATIVE: CASE EVENT DATE: 20230313
